FAERS Safety Report 8243094-8 (Version None)
Quarter: 2012Q1

REPORT INFORMATION
  Report Type: 
  Country: None (occurrence: None)
  Receive Date: 20120329
  Receipt Date: 20110316
  Transmission Date: 20120608
  Serious: No
  Sender: FDA-Public Use
  Company Number: US-MYLANLABS-2011S1005520

PATIENT
  Sex: Male

DRUGS (8)
  1. ALBUTEROL SULATE [Suspect]
     Indication: CHRONIC OBSTRUCTIVE PULMONARY DISEASE
     Route: 055
     Dates: start: 20110303, end: 20110310
  2. ALBUTEROL SULATE [Suspect]
     Route: 055
     Dates: start: 20110303, end: 20110310
  3. ALBUTEROL SULATE [Suspect]
     Route: 055
     Dates: start: 20110311, end: 20110311
  4. ALBUTEROL SULATE [Suspect]
     Route: 055
     Dates: start: 20110311, end: 20110311
  5. ALBUTEROL SULATE [Suspect]
     Indication: ASTHMA
     Route: 055
     Dates: start: 20110303, end: 20110310
  6. ALBUTEROL SULATE [Suspect]
     Route: 055
     Dates: start: 20110303, end: 20110310
  7. ALBUTEROL SULATE [Suspect]
     Route: 055
     Dates: start: 20110311, end: 20110311
  8. ALBUTEROL SULATE [Suspect]
     Route: 055
     Dates: start: 20110311, end: 20110311

REACTIONS (3)
  - CHEST DISCOMFORT [None]
  - WHEEZING [None]
  - DRUG INEFFECTIVE [None]
